FAERS Safety Report 21646905 (Version 2)
Quarter: 2022Q4

REPORT INFORMATION
  Report Type: Spontaneous
  Country: MY (occurrence: MY)
  Receive Date: 20221127
  Receipt Date: 20221215
  Transmission Date: 20230113
  Serious: Yes (Other)
  Sender: FDA-Public Use
  Company Number: MY-TEVA-2022-MY-2828985

PATIENT
  Age: 27 Year
  Sex: Male

DRUGS (5)
  1. PREDNISOLONE [Suspect]
     Active Substance: PREDNISOLONE
     Indication: Immunosuppression
     Route: 065
  2. GANCICLOVIR [Suspect]
     Active Substance: GANCICLOVIR
     Indication: Cytomegalovirus chorioretinitis
     Dosage: ADDITIONAL INFO: ROUTE: {INTRAVITREOUS}
     Route: 050
  3. EVEROLIMUS [Concomitant]
     Active Substance: EVEROLIMUS
     Indication: Immunosuppression
     Dosage: ADDITIONAL INFO: ACTION TAKEN: THERAPY CONTINUED
     Route: 065
  4. FLUDARABINE [Concomitant]
     Active Substance: FLUDARABINE PHOSPHATE
     Indication: Product used for unknown indication
     Dosage: ADDITIONAL INFO: INDICATION: MYELOABLATIVE CONDITIONING REGIMEN OF FLUDARABINE AND BUSULPHAN FOR HAE
     Route: 065
  5. BUSULFAN [Concomitant]
     Active Substance: BUSULFAN
     Indication: Product used for unknown indication
     Dosage: ADDITIONAL INFO: INDICATION: MYELOABLATIVE CONDITIONING REGIMEN OF FLUDARABINE AND BUSULPHAN FOR HAE
     Route: 065

REACTIONS (4)
  - Renal impairment [Recovered/Resolved]
  - Toxicity to various agents [Unknown]
  - End stage renal disease [Recovered/Resolved]
  - Polyomavirus viraemia [Recovered/Resolved]
